FAERS Safety Report 15152169 (Version 2)
Quarter: 2018Q3

REPORT INFORMATION
  Report Type: Report from Study
  Country: US (occurrence: US)
  Receive Date: 20180717
  Receipt Date: 20180724
  Transmission Date: 20181010
  Serious: No
  Sender: FDA-Public Use
  Company Number: US-ROCHE-2154142

PATIENT
  Sex: Female

DRUGS (1)
  1. OCREVUS [Suspect]
     Active Substance: OCRELIZUMAB
     Indication: PRIMARY PROGRESSIVE MULTIPLE SCLEROSIS
     Route: 065
     Dates: start: 201801

REACTIONS (2)
  - Ill-defined disorder [Unknown]
  - Fungal infection [Unknown]
